FAERS Safety Report 10048537 (Version 1)
Quarter: 2014Q1

REPORT INFORMATION
  Report Type: Report from Study
  Country: BR (occurrence: BR)
  Receive Date: 20140331
  Receipt Date: 20140331
  Transmission Date: 20141002
  Serious: Yes (Death, Hospitalization)
  Sender: FDA-Public Use
  Company Number: PHHY2014BR038492

PATIENT
  Sex: Male
  Weight: 98 kg

DRUGS (3)
  1. EXELON PATCH [Suspect]
     Indication: DEMENTIA ALZHEIMER^S TYPE
     Dosage: 1 ADHESIVE DAILY
     Route: 062
     Dates: start: 201402
  2. CARVEDILOL [Concomitant]
     Indication: CARDIAC DISORDER
     Dosage: 2 DF, DAILY
  3. SPIRONOLACTONE [Concomitant]
     Indication: CARDIAC DISORDER
     Dosage: 1 DF, DAILY

REACTIONS (1)
  - Pneumonia [Fatal]
